FAERS Safety Report 7769881-8 (Version None)
Quarter: 2011Q3

REPORT INFORMATION
  Report Type: 
  Country: None (occurrence: None)
  Receive Date: 20110922
  Receipt Date: 20110920
  Transmission Date: 20111222
  Serious: Yes (Other)
  Sender: FDA-Public Use
  Company Number: AU-ROCHE-803576

PATIENT
  Sex: Male

DRUGS (3)
  1. XELODA [Suspect]
     Route: 065
  2. XELODA [Suspect]
     Route: 065
  3. AVASTIN [Suspect]
     Route: 065

REACTIONS (2)
  - ANAL FISTULA [None]
  - DISEASE PROGRESSION [None]
